FAERS Safety Report 14383388 (Version 1)
Quarter: 2018Q1

REPORT INFORMATION
  Report Type: Report from Study
  Country: None (occurrence: ES)
  Receive Date: 20180115
  Receipt Date: 20180115
  Transmission Date: 20180509
  Serious: Yes (Hospitalization)
  Sender: FDA-Public Use
  Company Number: ES-ABBVIE-17K-144-2173905-00

PATIENT
  Age: 74 Year
  Sex: Male
  Weight: 85 kg

DRUGS (5)
  1. DUODOPA [Suspect]
     Active Substance: CARBIDOPA\LEVODOPA
     Indication: PARKINSON^S DISEASE
     Route: 050
     Dates: start: 20171120, end: 2017
  2. DUODOPA [Suspect]
     Active Substance: CARBIDOPA\LEVODOPA
     Dosage: DOSE DECREASED
     Route: 050
     Dates: start: 20180102, end: 20180102
  3. DUODOPA [Suspect]
     Active Substance: CARBIDOPA\LEVODOPA
     Dosage: MORNING DOSE DECREASED
     Route: 050
     Dates: start: 20180103
  4. DUODOPA [Suspect]
     Active Substance: CARBIDOPA\LEVODOPA
     Dosage: DECREASED CONTINUES DOSE 0.3ML/H
     Route: 050
     Dates: start: 2017, end: 2017
  5. DUODOPA [Suspect]
     Active Substance: CARBIDOPA\LEVODOPA
     Dosage: DOSE INCREASED
     Route: 050
     Dates: start: 2017

REACTIONS (17)
  - Dyskinesia [Not Recovered/Not Resolved]
  - Mobility decreased [Not Recovered/Not Resolved]
  - Intentional product misuse [Unknown]
  - Pain [Not Recovered/Not Resolved]
  - Nervousness [Not Recovered/Not Resolved]
  - Bronchial disorder [Unknown]
  - Parkinson^s disease [Unknown]
  - Anxiety [Not Recovered/Not Resolved]
  - Restlessness [Unknown]
  - Dystonia [Unknown]
  - On and off phenomenon [Unknown]
  - Speech disorder [Not Recovered/Not Resolved]
  - On and off phenomenon [Recovering/Resolving]
  - Feeling abnormal [Not Recovered/Not Resolved]
  - Therapeutic response decreased [Unknown]
  - Drug ineffective [Not Recovered/Not Resolved]
  - Dyskinesia [Unknown]

NARRATIVE: CASE EVENT DATE: 2017
